FAERS Safety Report 8354604-4 (Version None)
Quarter: 2012Q2

REPORT INFORMATION
  Report Type: 
  Country: None (occurrence: None)
  Receive Date: 20120511
  Receipt Date: 20120502
  Transmission Date: 20120825
  Serious: Yes (Hospitalization, Other)
  Sender: FDA-Public Use
  Company Number: US-MERCK-1202USA02452

PATIENT
  Age: 58 Year
  Sex: Female
  Weight: 71 kg

DRUGS (2)
  1. ACTONEL [Suspect]
     Indication: OSTEOPOROSIS
     Route: 048
  2. FOSAMAX [Suspect]
     Indication: OSTEOPOROSIS
     Route: 048
     Dates: start: 20000901

REACTIONS (54)
  - LOOSE BODY IN JOINT [None]
  - DIVERTICULITIS INTESTINAL HAEMORRHAGIC [None]
  - NEUROMA [None]
  - EXOSTOSIS [None]
  - BASAL CELL CARCINOMA [None]
  - ANXIETY [None]
  - CONSTIPATION [None]
  - DERMATITIS CONTACT [None]
  - FOOT FRACTURE [None]
  - FALL [None]
  - GLAUCOMA [None]
  - PARATHYROID DISORDER [None]
  - BUNION [None]
  - GASTROOESOPHAGEAL REFLUX DISEASE [None]
  - NECROSIS [None]
  - SINUS DISORDER [None]
  - HYPERPARATHYROIDISM [None]
  - SYNOVIAL CYST [None]
  - OSTEOPENIA [None]
  - LOW TURNOVER OSTEOPATHY [None]
  - INFLAMMATION [None]
  - PAIN IN EXTREMITY [None]
  - HYPERCHOLESTEROLAEMIA [None]
  - DYSPEPSIA [None]
  - DIAPHRAGMATIC HERNIA [None]
  - ARTHRITIS [None]
  - PERIARTHRITIS [None]
  - FOOT DEFORMITY [None]
  - SPINAL OSTEOARTHRITIS [None]
  - TELANGIECTASIA [None]
  - HIATUS HERNIA [None]
  - DRUG INEFFECTIVE [None]
  - MITRAL VALVE PROLAPSE [None]
  - SINUS HEADACHE [None]
  - FRACTURE NONUNION [None]
  - CATARACT [None]
  - AORTIC CALCIFICATION [None]
  - ANKLE DEFORMITY [None]
  - FRACTURE DELAYED UNION [None]
  - DRUG THERAPEUTIC INCOMPATIBILITY [None]
  - LIMB ASYMMETRY [None]
  - PERIOSTITIS [None]
  - PARAESTHESIA [None]
  - CYST [None]
  - FEMUR FRACTURE [None]
  - DIVERTICULITIS [None]
  - LIMB INJURY [None]
  - DRY EYE [None]
  - OSTEOARTHRITIS [None]
  - SPINAL FRACTURE [None]
  - VARICOSE VEIN [None]
  - UVEITIS [None]
  - SINUS TARSI SYNDROME [None]
  - COLLAGEN DISORDER [None]
